FAERS Safety Report 8417382-6 (Version None)
Quarter: 2012Q2

REPORT INFORMATION
  Report Type: 
  Country: None (occurrence: None)
  Receive Date: 20120606
  Receipt Date: 20120524
  Transmission Date: 20120825
  Serious: No
  Sender: FDA-Public Use
  Company Number: US-ASTRAZENECA-2012SE33720

PATIENT
  Age: 42 Year
  Sex: Male
  Weight: 86.2 kg

DRUGS (2)
  1. SEROQUEL XR [Suspect]
     Route: 048
  2. SEROQUEL XR [Suspect]
     Indication: BIPOLAR DISORDER
     Route: 048

REACTIONS (11)
  - SEDATION [None]
  - HEADACHE [None]
  - MANIA [None]
  - INSOMNIA [None]
  - ABDOMINAL PAIN UPPER [None]
  - VOMITING [None]
  - COLD SWEAT [None]
  - MALAISE [None]
  - MIGRAINE [None]
  - INTENTIONAL DRUG MISUSE [None]
  - DRUG DOSE OMISSION [None]
